FAERS Safety Report 20652372 (Version 2)
Quarter: 2022Q2

REPORT INFORMATION
  Report Type: Spontaneous
  Country: RU (occurrence: None)
  Receive Date: 20220330
  Receipt Date: 20220629
  Transmission Date: 20220721
  Serious: Yes (Hospitalization)
  Sender: FDA-Public Use
  Company Number: RU-ROCHE-3057620

PATIENT
  Age: 38 Year
  Sex: Female

DRUGS (6)
  1. MABTHERA [Suspect]
     Active Substance: RITUXIMAB
     Indication: Multiple sclerosis
     Route: 065
     Dates: start: 201906
  2. OCREVUS [Suspect]
     Active Substance: OCRELIZUMAB
     Indication: Multiple sclerosis
     Dosage: SECOND ADMINISTRATION OF OCRELIZUMAB ON /JAN/2021, DAILY DOSE AND DOSING REGIMEN USED 600 MG TO 300
     Route: 065
     Dates: start: 20210711
  3. CARBAMAZEPINE [Concomitant]
     Active Substance: CARBAMAZEPINE
  4. VALPROATE [Concomitant]
     Active Substance: VALPROIC ACID
  5. LEVETIRACETAM [Concomitant]
     Active Substance: LEVETIRACETAM
  6. PREDNISOLONE [Concomitant]
     Active Substance: PREDNISOLONE
     Dates: start: 202005

REACTIONS (2)
  - Off label use [Unknown]
  - COVID-19 pneumonia [Unknown]

NARRATIVE: CASE EVENT DATE: 20200601
